FAERS Safety Report 4844803-8 (Version None)
Quarter: 2005Q4

REPORT INFORMATION
  Report Type: 
  Country: None (occurrence: None)
  Receive Date: 20051129
  Receipt Date: 20051115
  Transmission Date: 20060501
  Serious: Yes (Other)
  Sender: FDA-Public Use
  Company Number: 2005156614

PATIENT
  Sex: Female

DRUGS (3)
  1. MINOXIDIL [Suspect]
     Dosage: TOPICAL
     Route: 061
     Dates: start: 20050901
  2. MOXIFLOXACIN HCL [Concomitant]
  3. PREDNISOLONE SODIUM PHOSPHATE [Concomitant]

REACTIONS (2)
  - MYDRIASIS [None]
  - VISUAL DISTURBANCE [None]
